FAERS Safety Report 11909142 (Version 1)
Quarter: 2016Q1

REPORT INFORMATION
  Report Type: Report from Study
  Country: JP (occurrence: JP)
  Receive Date: 20160112
  Receipt Date: 20160112
  Transmission Date: 20160526
  Serious: Yes (Death, Life-Threatening, Hospitalization, Other)
  Sender: FDA-Public Use
  Company Number: JP-PFIZER INC-2014308304

PATIENT
  Age: 58 Year
  Sex: Male
  Weight: 62 kg

DRUGS (3)
  1. XALKORI [Suspect]
     Active Substance: CRIZOTINIB
     Indication: NON-SMALL CELL LUNG CANCER
     Dosage: 250 MG, 2X/DAY
     Route: 048
     Dates: start: 20140604, end: 20140707
  2. XALKORI [Suspect]
     Active Substance: CRIZOTINIB
     Dosage: 200 MG, 2X/DAY
     Route: 048
     Dates: start: 20140723, end: 20140818
  3. OXYCONTIN [Concomitant]
     Active Substance: OXYCODONE HYDROCHLORIDE
     Dosage: 10 MG, 2X/DAY
     Route: 048

REACTIONS (3)
  - Hepatotoxicity [Recovering/Resolving]
  - Pleural effusion [Recovering/Resolving]
  - Interstitial lung disease [Recovering/Resolving]

NARRATIVE: CASE EVENT DATE: 20140707
